FAERS Safety Report 4659681-X (Version None)
Quarter: 2005Q2

REPORT INFORMATION
  Report Type: 
  Country: None (occurrence: None)
  Receive Date: 20050420
  Receipt Date: 20050228
  Transmission Date: 20051028
  Serious: No
  Sender: FDA-Public Use
  Company Number: PHEH2005US02566

PATIENT
  Age: 73 Year
  Sex: Female

DRUGS (4)
  1. ENABLEX [Suspect]
     Indication: HYPERTONIC BLADDER
     Dosage: 7.5 MG QD ORAL
     Route: 048
     Dates: start: 20050226
  2. TROSPIUM CHLORIDE (TROSPIUM CHLORIDE) [Suspect]
  3. LEVOTHROID [Concomitant]
  4. ATENOLOL [Concomitant]

REACTIONS (4)
  - CONDITION AGGRAVATED [None]
  - MUSCULAR WEAKNESS [None]
  - NOCTURIA [None]
  - POLLAKIURIA [None]
